FAERS Safety Report 18177326 (Version 1)
Quarter: 2020Q3

REPORT INFORMATION
  Report Type: Spontaneous
  Country: None (occurrence: US)
  Receive Date: 20200820
  Receipt Date: 20200820
  Transmission Date: 20201103
  Serious: Yes (Death, Other)
  Sender: FDA-Public Use
  Company Number: US-OSMOTICA_PHARMACEUTICAL_US_LLC-POI0573202000448

PATIENT
  Age: 88 Year
  Sex: Male

DRUGS (3)
  1. OSMOLEX ER [Suspect]
     Active Substance: AMANTADINE
     Indication: PARKINSON^S DISEASE
     Dates: start: 20190612, end: 201907
  2. OSMOLEX ER [Suspect]
     Active Substance: AMANTADINE
     Dates: start: 20190925
  3. OSMOLEX ER [Suspect]
     Active Substance: AMANTADINE
     Dates: start: 201907, end: 20190924

REACTIONS (2)
  - Hallucination [Recovered/Resolved]
  - Death [Fatal]

NARRATIVE: CASE EVENT DATE: 201909
